FAERS Safety Report 8814302 (Version 2)
Quarter: 2012Q4

REPORT INFORMATION
  Report Type: Spontaneous
  Country: JP (occurrence: None)
  Receive Date: 20120925
  Receipt Date: 20120925
  Transmission Date: 20130627
  Serious: Yes (Hospitalization)
  Sender: FDA-Public Use
  Company Number: 2012S1000927

PATIENT
  Age: 71 Year
  Sex: Female

DRUGS (2)
  1. LIVALO [Suspect]
     Indication: HYPERCHOLESTEROLAEMIA
     Route: 048
     Dates: start: 20110208, end: 20120721
  2. BROMETON [Concomitant]

REACTIONS (4)
  - Rash erythematous [None]
  - Rash generalised [None]
  - Hepatic function abnormal [None]
  - Pyrexia [None]
